FAERS Safety Report 14425291 (Version 1)
Quarter: 2018Q1

REPORT INFORMATION
  Report Type: Spontaneous
  Country: BR (occurrence: BR)
  Receive Date: 20180123
  Receipt Date: 20180123
  Transmission Date: 20180509
  Serious: Yes (Other)
  Sender: FDA-Public Use
  Company Number: BR-PFIZER INC-2014263784

PATIENT
  Age: 49 Year
  Sex: Female

DRUGS (2)
  1. FELDENE [Suspect]
     Active Substance: PIROXICAM
     Indication: PAIN
     Dosage: UNK
     Dates: start: 1982, end: 1983
  2. FELDENE [Concomitant]
     Active Substance: PIROXICAM
     Dosage: UNK
     Dates: start: 1982

REACTIONS (3)
  - Gastric haemorrhage [Recovered/Resolved]
  - Haemorrhage [Unknown]
  - Abdominal pain upper [Recovered/Resolved]

NARRATIVE: CASE EVENT DATE: 1983
